FAERS Safety Report 5005928-X (Version None)
Quarter: 2006Q1

REPORT INFORMATION
  Report Type: 
  Country: None (occurrence: None)
  Receive Date: 20060320
  Receipt Date: 20050217
  Transmission Date: 20060701
  Serious: Yes (Other)
  Sender: FDA-Public Use
  Company Number: 2005-02-1369

PATIENT
  Age: 49 Year
  Sex: Male

DRUGS (7)
  1. PEG-INTRON [Suspect]
     Indication: HEPATITIS C
     Dates: start: 20040508
  2. REBETOL [Suspect]
     Indication: HEPATITIS C
     Dates: start: 20040508
  3. FLEXERIL [Concomitant]
  4. HYDROXYZINE PAMOATE [Concomitant]
  5. LODINE [Concomitant]
  6. NEXIUM [Concomitant]
  7. REMERON [Concomitant]

REACTIONS (1)
  - CONGESTIVE CARDIOMYOPATHY [None]
